FAERS Safety Report 7297461-X (Version None)
Quarter: 2011Q1

REPORT INFORMATION
  Report Type: 
  Country: None (occurrence: None)
  Receive Date: 20110216
  Receipt Date: 20110203
  Transmission Date: 20110831
  Serious: Yes (Other)
  Sender: FDA-Public Use
  Company Number: DE-ACTELION-A-CH2011-43950

PATIENT
  Sex: Female

DRUGS (11)
  1. ACTRAPID [Concomitant]
  2. TRACLEER [Suspect]
     Dosage: 62.5 MG, BID
     Route: 048
     Dates: start: 20110202
  3. PREDNISOLONE [Concomitant]
  4. ACTONEL [Concomitant]
  5. PROTAPHANE [Concomitant]
  6. SPIRONOLACTONE [Concomitant]
  7. TRACLEER [Suspect]
     Indication: SYSTEMIC SCLEROSIS
     Dosage: 125 MG, BID
     Route: 048
     Dates: start: 20090720, end: 20110111
  8. RAMIPRIL [Concomitant]
  9. TRACLEER [Suspect]
     Dosage: 62.5 MG, BID
     Route: 048
  10. TOREM [Concomitant]
  11. PANTAZOL [Concomitant]

REACTIONS (8)
  - AUTOIMMUNE HEPATITIS [None]
  - ALANINE AMINOTRANSFERASE INCREASED [None]
  - GAMMA-GLUTAMYLTRANSFERASE INCREASED [None]
  - METABOLIC SYNDROME [None]
  - BLOOD ALKALINE PHOSPHATASE INCREASED [None]
  - LIVER FUNCTION TEST ABNORMAL [None]
  - ASPARTATE AMINOTRANSFERASE INCREASED [None]
  - RHEUMATOID ARTHRITIS [None]
